FAERS Safety Report 7736542-0 (Version None)
Quarter: 2011Q3

REPORT INFORMATION
  Report Type: 
  Country: None (occurrence: None)
  Receive Date: 20110908
  Receipt Date: 20110829
  Transmission Date: 20111222
  Serious: Yes (Hospitalization, Other)
  Sender: FDA-Public Use
  Company Number: DE-BAYER-2011-065829

PATIENT
  Age: 43 Year
  Sex: Female
  Weight: 87 kg

DRUGS (4)
  1. LAXATIVE [Concomitant]
     Indication: CONSTIPATION
     Dosage: UNK
     Route: 048
  2. ACTRAPHANE [Concomitant]
     Indication: DIABETES MELLITUS
     Dosage: 8 IU, PRN
     Route: 058
  3. CITALOPRAM HYDROBROMIDE [Concomitant]
     Indication: DEPRESSION
     Dosage: 10 MG, UNK
     Route: 048
     Dates: start: 20091127
  4. BETASERON [Suspect]
     Indication: MULTIPLE SCLEROSIS
     Dosage: 250 ?G, UNK
     Route: 058
     Dates: start: 20081028

REACTIONS (8)
  - PELVIC MASS [None]
  - ABNORMAL LOSS OF WEIGHT [None]
  - ABDOMINAL PAIN [None]
  - TUBO-OVARIAN ABSCESS [None]
  - APPENDICITIS [None]
  - ABDOMINAL WALL DISORDER [None]
  - ABDOMINAL DISTENSION [None]
  - INTESTINAL OPERATION [None]
